APPROVED DRUG PRODUCT: PROCAINAMIDE HYDROCHLORIDE
Active Ingredient: PROCAINAMIDE HYDROCHLORIDE
Strength: 500MG/ML
Dosage Form/Route: INJECTABLE;INJECTION
Application: A089070 | Product #001
Applicant: HOSPIRA INC
Approved: Feb 12, 1986 | RLD: No | RS: No | Type: DISCN